FAERS Safety Report 9516876 (Version 1)
Quarter: 2013Q3

REPORT INFORMATION
  Report Type: Spontaneous
  Country: BR (occurrence: BR)
  Receive Date: 20130911
  Receipt Date: 20130911
  Transmission Date: 20140515
  Serious: Yes (Hospitalization)
  Sender: FDA-Public Use
  Company Number: BR-BRISTOL-MYERS SQUIBB COMPANY-19234475

PATIENT
  Age: 97 Year
  Sex: Female
  Weight: 60 kg

DRUGS (11)
  1. KOMBIGLYZE XR [Suspect]
     Indication: DIABETES MELLITUS
     Dosage: 1DF: 5/1000 UNITS NOS
     Route: 048
     Dates: start: 2013
  2. ZINNAT [Suspect]
  3. CLARITHROMYCIN [Suspect]
  4. GLICLAZIDE [Concomitant]
     Indication: DIABETES MELLITUS
  5. OMEPRAZOLE [Concomitant]
     Indication: GASTRIC DISORDER
  6. AMLODIPINE BESYLATE [Concomitant]
     Indication: HYPERTENSION
  7. METILDOPA [Concomitant]
     Indication: HYPERTENSION
  8. SIMVASTATIN [Concomitant]
     Indication: BLOOD CHOLESTEROL INCREASED
  9. THIAMINE HCL [Concomitant]
  10. PIROXICAM [Concomitant]
     Indication: PAIN IN EXTREMITY
  11. INSULIN [Concomitant]

REACTIONS (4)
  - Pneumonia [Unknown]
  - Gastric disorder [Unknown]
  - Liver disorder [Unknown]
  - Overdose [Unknown]
